FAERS Safety Report 17487376 (Version 1)
Quarter: 2020Q1

REPORT INFORMATION
  Report Type: Spontaneous
  Country: US (occurrence: US)
  Receive Date: 20200302
  Receipt Date: 20200302
  Transmission Date: 20200409
  Serious: Yes (Other)
  Sender: FDA-Public Use
  Company Number: None

PATIENT
  Age: 54 Year
  Sex: Female

DRUGS (1)
  1. AFINITOR [Suspect]
     Active Substance: EVEROLIMUS
     Indication: CARCINOID TUMOUR OF THE CAECUM
     Route: 048
     Dates: start: 20200129

REACTIONS (5)
  - Rash [None]
  - Urticaria [None]
  - Vision blurred [None]
  - Epistaxis [None]
  - Stomatitis [None]

NARRATIVE: CASE EVENT DATE: 20200302
